FAERS Safety Report 20602329 (Version 1)
Quarter: 2022Q1

REPORT INFORMATION
  Report Type: Spontaneous
  Country: CN (occurrence: CN)
  Receive Date: 20220316
  Receipt Date: 20220316
  Transmission Date: 20220424
  Serious: Yes (Hospitalization)
  Sender: FDA-Public Use
  Company Number: CN-PFIZER INC-202200377007

PATIENT
  Age: 41 Year
  Sex: Female
  Weight: 62 kg

DRUGS (6)
  1. EPIRUBICIN [Suspect]
     Active Substance: EPIRUBICIN
     Indication: Invasive ductal breast carcinoma
     Dosage: 130 MG, 1X/DAY
     Route: 041
     Dates: start: 20211217, end: 20211217
  2. EPIRUBICIN [Suspect]
     Active Substance: EPIRUBICIN
     Dosage: 130 MG, 1X/DAY
     Route: 041
     Dates: start: 20220114, end: 20220114
  3. EPIRUBICIN [Suspect]
     Active Substance: EPIRUBICIN
     Dosage: 130 MG, 1X/DAY
     Route: 041
     Dates: start: 20220211, end: 20220211
  4. CYCLOPHOSPHAMIDE [Suspect]
     Active Substance: CYCLOPHOSPHAMIDE
     Indication: Invasive ductal breast carcinoma
     Dosage: 1 G, 1X/DAY
     Route: 041
     Dates: start: 20211217, end: 20211217
  5. CYCLOPHOSPHAMIDE [Suspect]
     Active Substance: CYCLOPHOSPHAMIDE
     Dosage: 1 G, 1X/DAY
     Route: 041
     Dates: start: 20220114, end: 20220114
  6. CYCLOPHOSPHAMIDE [Suspect]
     Active Substance: CYCLOPHOSPHAMIDE
     Dosage: 1 G, 1X/DAY
     Route: 041
     Dates: start: 20220211, end: 20220211

REACTIONS (1)
  - Drug-induced liver injury [Recovering/Resolving]

NARRATIVE: CASE EVENT DATE: 20220221
